FAERS Safety Report 14215455 (Version 1)
Quarter: 2017Q4

REPORT INFORMATION
  Report Type: Spontaneous
  Country: US (occurrence: US)
  Receive Date: 20171122
  Receipt Date: 20171122
  Transmission Date: 20180321
  Serious: No
  Sender: FDA-Public Use
  Company Number: US-JNJFOC-20170911014

PATIENT
  Age: 86 Year
  Sex: Male
  Weight: 88.91 kg

DRUGS (9)
  1. PRILOSEC [Concomitant]
     Active Substance: OMEPRAZOLE MAGNESIUM
     Indication: GASTROOESOPHAGEAL REFLUX DISEASE
     Route: 065
     Dates: start: 2013
  2. ATENOLOL. [Concomitant]
     Active Substance: ATENOLOL
     Indication: HYPERTENSION
     Route: 065
     Dates: start: 2013
  3. DILANTIN [Interacting]
     Active Substance: PHENYTOIN
     Indication: TRANSIENT GLOBAL AMNESIA
     Route: 065
     Dates: start: 2013
  4. DILANTIN [Interacting]
     Active Substance: PHENYTOIN
     Indication: SEIZURE
     Route: 065
     Dates: start: 2013
  5. PREDNISONE. [Concomitant]
     Active Substance: PREDNISONE
     Indication: PROSTATE CANCER METASTATIC
     Route: 065
     Dates: start: 20170810
  6. ZETIA [Concomitant]
     Active Substance: EZETIMIBE
     Indication: HIGH DENSITY LIPOPROTEIN
     Route: 065
     Dates: start: 2013
  7. ZYTIGA [Suspect]
     Active Substance: ABIRATERONE ACETATE
     Indication: PROSTATE CANCER METASTATIC
     Route: 048
     Dates: start: 20170810
  8. AMLODIPINE [Concomitant]
     Active Substance: AMLODIPINE BESYLATE
     Indication: HYPERTENSION
     Route: 065
     Dates: start: 2013
  9. LIPITOR [Concomitant]
     Active Substance: ATORVASTATIN CALCIUM
     Indication: HIGH DENSITY LIPOPROTEIN
     Route: 065
     Dates: start: 2013

REACTIONS (1)
  - Drug interaction [Unknown]

NARRATIVE: CASE EVENT DATE: 20170825
